FAERS Safety Report 25708725 (Version 1)
Quarter: 2025Q3

REPORT INFORMATION
  Report Type: Report from Study
  Country: US (occurrence: US)
  Receive Date: 20250821
  Receipt Date: 20250821
  Transmission Date: 20251020
  Serious: Yes (Other)
  Sender: CSL BEHRING
  Company Number: US-BEH-2025215822

PATIENT
  Age: 78 Year
  Sex: Female

DRUGS (3)
  1. HIZENTRA [Interacting]
     Active Substance: HUMAN IMMUNOGLOBULIN G
     Route: 065
     Dates: start: 202505
  2. HIZENTRA [Interacting]
     Active Substance: HUMAN IMMUNOGLOBULIN G
     Route: 065
     Dates: start: 202505
  3. BENADRYL [Interacting]
     Active Substance: DIPHENHYDRAMINE HYDROCHLORIDE
     Route: 065

REACTIONS (7)
  - Coma [Unknown]
  - Depressed level of consciousness [Unknown]
  - Drug interaction [Recovering/Resolving]
  - Product dose omission issue [Recovering/Resolving]
  - Feeling abnormal [Unknown]
  - Injection site pain [Unknown]
  - Product use issue [Unknown]
